FAERS Safety Report 8486165-3 (Version None)
Quarter: 2012Q3

REPORT INFORMATION
  Report Type: 
  Country: None (occurrence: None)
  Receive Date: 20120703
  Receipt Date: 20120627
  Transmission Date: 20120928
  Serious: Yes (Other)
  Sender: FDA-Public Use
  Company Number: AU-PFIZER INC-2012154012

PATIENT
  Age: 48 Year
  Sex: Male

DRUGS (8)
  1. METFORMIN HCL [Concomitant]
     Dosage: UNK
  2. ASPIRIN [Concomitant]
     Dosage: UNK
  3. RABEPRAZOLE SODIUM [Concomitant]
     Dosage: UNK
  4. CARBAMAZEPINE [Concomitant]
  5. METOPROLOL TARTRATE [Concomitant]
     Dosage: UNK
  6. ONGLYZA [Concomitant]
     Dosage: UNK
  7. LASIX [Concomitant]
     Dosage: UNK
  8. ATORVASTATIN CALCIUM [Suspect]
     Dosage: UNK

REACTIONS (1)
  - MEMORY IMPAIRMENT [None]
